FAERS Safety Report 8212590-1 (Version None)
Quarter: 2012Q1

REPORT INFORMATION
  Report Type: 
  Country: None (occurrence: None)
  Receive Date: 20120315
  Receipt Date: 20120313
  Transmission Date: 20120608
  Serious: No
  Sender: FDA-Public Use
  Company Number: US-PFIZER INC-2012048943

PATIENT
  Sex: Female
  Weight: 108 kg

DRUGS (11)
  1. LISINOPRIL AND HYDROCHLOROTHIAZIDE [Concomitant]
     Indication: HYPERTENSION
     Dosage: [LISINOPRIL 20MG]/[HYDROCHLOROTHIAZIDE25MG], 1X/DAY
  2. METFORMIN [Concomitant]
     Indication: DIABETES MELLITUS
     Dosage: 1000 MG, UNK
  3. NIACIN [Concomitant]
     Dosage: 1000 MG, UNK
  4. ASPIRIN [Concomitant]
     Dosage: 81 MG, UNK
  5. CHANTIX [Suspect]
     Indication: SMOKING CESSATION THERAPY
     Dosage: 0.5 MG, 1X/DAY
     Route: 048
     Dates: start: 20120219
  6. METOPROLOL [Concomitant]
     Indication: HYPERTENSION
     Dosage: 50 MG, 2X/DAY
  7. HALOPERIDOL [Concomitant]
     Indication: DEPRESSION
     Dosage: 5 MG, 1X/DAY
  8. CHANTIX [Suspect]
     Dosage: UNK
     Route: 048
     Dates: start: 20120201
  9. SIMVASTATIN [Concomitant]
     Indication: BLOOD CHOLESTEROL INCREASED
     Dosage: UNK
  10. CITRACAL [Concomitant]
     Dosage: 600 MG, UNK
  11. LEVOTHYROXINE SODIUM [Concomitant]
     Indication: HYPOTHYROIDISM
     Dosage: 125 MG, UNK

REACTIONS (5)
  - ANGER [None]
  - HYPERHIDROSIS [None]
  - HEADACHE [None]
  - DRUG INEFFECTIVE [None]
  - ANXIETY [None]
